FAERS Safety Report 12756619 (Version 4)
Quarter: 2016Q4

REPORT INFORMATION
  Report Type: Spontaneous
  Country: TW (occurrence: TW)
  Receive Date: 20160917
  Receipt Date: 20161210
  Transmission Date: 20170207
  Serious: Yes (Hospitalization, Other)
  Sender: FDA-Public Use
  Company Number: TW-AMGEN-TWNSP2016096769

PATIENT
  Age: 56 Year
  Sex: Male

DRUGS (1)
  1. ENBREL [Suspect]
     Active Substance: ETANERCEPT
     Indication: RHEUMATOID ARTHRITIS
     Dosage: 25 MG, 2X/WEEK
     Route: 058
     Dates: start: 20150306, end: 20160715

REACTIONS (7)
  - Dysuria [Unknown]
  - Red blood cells urine positive [Not Recovered/Not Resolved]
  - Ureteric stenosis [Unknown]
  - White blood cells urine positive [Not Recovered/Not Resolved]
  - Urine abnormality [Unknown]
  - Protein urine present [Not Recovered/Not Resolved]
  - Hydronephrosis [Unknown]

NARRATIVE: CASE EVENT DATE: 201607
